FAERS Safety Report 18322135 (Version 3)
Quarter: 2020Q4

REPORT INFORMATION
  Report Type: Report from Study
  Country: CO (occurrence: CO)
  Receive Date: 20200928
  Receipt Date: 20201112
  Transmission Date: 20210113
  Serious: Yes (Other)
  Sender: FDA-Public Use
  Company Number: CO-TAKEDA-2020TUS036946

PATIENT
  Age: 31 Year
  Sex: Female
  Weight: 46 kg

DRUGS (1)
  1. VEDOLIZUMAB [Suspect]
     Active Substance: VEDOLIZUMAB
     Indication: CROHN^S DISEASE
     Dosage: 300 MILLIGRAM
     Route: 042
     Dates: start: 20170123

REACTIONS (14)
  - Secretion discharge [Recovered/Resolved]
  - Discomfort [Not Recovered/Not Resolved]
  - Diarrhoea [Recovered/Resolved]
  - Oedema peripheral [Not Recovered/Not Resolved]
  - Malaise [Recovered/Resolved]
  - Pyrexia [Recovered/Resolved]
  - Weight increased [Unknown]
  - Pain in extremity [Recovered/Resolved]
  - Productive cough [Not Recovered/Not Resolved]
  - Bronchitis [Not Recovered/Not Resolved]
  - Vomiting [Recovered/Resolved]
  - Nasal congestion [Not Recovered/Not Resolved]
  - Abdominal discomfort [Recovered/Resolved]
  - Gastroenteritis [Recovered/Resolved]

NARRATIVE: CASE EVENT DATE: 20200501
